FAERS Safety Report 6819203-1 (Version None)
Quarter: 2010Q3

REPORT INFORMATION
  Report Type: 
  Country: None (occurrence: None)
  Receive Date: 20100707
  Receipt Date: 20100622
  Transmission Date: 20110219
  Serious: No
  Sender: FDA-Public Use
  Company Number: US-B.I. PHARMACEUTICALS,INC./RIDGEFIELD-2010-BP-07119BP

PATIENT
  Sex: Female

DRUGS (14)
  1. SPIRIVA [Suspect]
     Indication: CHRONIC OBSTRUCTIVE PULMONARY DISEASE
     Dosage: 18 MCG
     Route: 055
     Dates: start: 20070101
  2. SPIRIVA [Suspect]
     Indication: BRONCHITIS CHRONIC
  3. PLAQUENIL [Concomitant]
     Indication: SYSTEMIC LUPUS ERYTHEMATOSUS
  4. JANUVIA [Concomitant]
     Indication: DIABETES MELLITUS
  5. ACTOS [Concomitant]
     Indication: DIABETES MELLITUS
  6. GLIPIZIDE [Concomitant]
     Indication: DIABETES MELLITUS
  7. COREG [Concomitant]
     Indication: HYPERTENSION
  8. COZAAR [Concomitant]
     Indication: HYPERTENSION
  9. PROVENTIL [Concomitant]
     Indication: CHRONIC OBSTRUCTIVE PULMONARY DISEASE
  10. PROVENTIL [Concomitant]
     Indication: BRONCHITIS CHRONIC
  11. CRESTOR [Concomitant]
     Indication: BLOOD CHOLESTEROL INCREASED
  12. PRILOSEC [Concomitant]
     Indication: ABDOMINAL DISCOMFORT
  13. BONIVA [Concomitant]
     Indication: OSTEOPOROSIS
  14. VAGIFEM [Concomitant]
     Indication: HORMONE REPLACEMENT THERAPY

REACTIONS (6)
  - COUGH [None]
  - DERMAL CYST [None]
  - FALL [None]
  - GLAUCOMA [None]
  - INCREASED BRONCHIAL SECRETION [None]
  - UPPER LIMB FRACTURE [None]
